FAERS Safety Report 18933131 (Version 1)
Quarter: 2021Q1

REPORT INFORMATION
  Report Type: Spontaneous
  Country: US (occurrence: US)
  Receive Date: 20210223
  Receipt Date: 20210223
  Transmission Date: 20210420
  Serious: No
  Sender: FDA-Public Use
  Company Number: None

PATIENT
  Sex: Female

DRUGS (1)
  1. HUMIRA [Suspect]
     Active Substance: ADALIMUMAB
     Indication: PSORIATIC ARTHROPATHY
     Route: 058
     Dates: start: 202011

REACTIONS (7)
  - Gastric disorder [None]
  - Nervous system disorder [None]
  - Headache [None]
  - Thyroid disorder [None]
  - Metabolic disorder [None]
  - Blood iron abnormal [None]
  - Full blood count abnormal [None]
